FAERS Safety Report 6813278-1 (Version None)
Quarter: 2010Q2

REPORT INFORMATION
  Report Type: 
  Country: None (occurrence: None)
  Receive Date: 20100628
  Receipt Date: 20100614
  Transmission Date: 20101027
  Serious: Yes (Hospitalization)
  Sender: FDA-Public Use
  Company Number: DSU-2010-02721

PATIENT
  Age: 80 Year
  Sex: Male
  Weight: 67.1324 kg

DRUGS (15)
  1. BENICAR [Suspect]
     Indication: HYPERTENSION
     Dosage: SEE IMAGE
     Route: 048
     Dates: end: 20010610
  2. BENICAR [Suspect]
     Indication: HYPERTENSION
     Dosage: SEE IMAGE
     Route: 048
     Dates: start: 20100610, end: 20100613
  3. BENICAR [Suspect]
     Indication: HYPERTENSION
     Dosage: SEE IMAGE
     Route: 048
     Dates: start: 20100614
  4. LIPITOR (ATORVASTATIN CALCIUM) (40 MILLIGRAM)(ATORVASTATIN CALCIUM) [Concomitant]
  5. SYNTHROID (LEVOTHYROXINE SODIUM)(88 MICROGRAM)(LEVOTHYROXINE SODIUM) [Concomitant]
  6. ECOTRIN (ACETYLSALICYLIC ACID) (325 MILLIGRAM) (ACETYLSALICYLIC ACID) [Concomitant]
  7. PEPCID (FAMOTIDINE) (20 MILLIGRAM) (FAMOTIDINE) [Concomitant]
  8. MAG-OX (MAGNESIUM OXIDE) (400 MILLIGRAM) (MAGNESIUM OXIDE) [Concomitant]
  9. PROSCAR (FINASTERIDE) (5 MILLIGRAM) (FINASTERIDE) [Concomitant]
  10. TOPROL XL (METOPROLOL SUCCINATE) 25 MILLIGRAM)(METOPROLOL SUCCINATE) [Concomitant]
  11. FLOMAX (TAMSULOSIN HYDROCHLORIDE) (0.4 MILLIGRAM) (TAMSULOSIN HYDROCHL [Concomitant]
  12. FUROSEMIDE (FUROSEMIDE) (20 MILLIGRAM) (FUROSEMIDE) [Concomitant]
  13. KLOR-CON (POTASSIUM CHLORIDE) (POTASSIUM CHLORIDE) [Concomitant]
  14. AMIODARONE (AMIODARONE) (200 MILLIGRAM) (AMIODARONE) [Concomitant]
  15. COLACE (DOCUSATE SODIUM) (100 MILLIGRAM) (DOCUSATE SODIUM) [Concomitant]

REACTIONS (3)
  - CARDIAC OPERATION [None]
  - DRUG ADMINISTRATION ERROR [None]
  - WRONG TECHNIQUE IN DRUG USAGE PROCESS [None]
